FAERS Safety Report 18446848 (Version 1)
Quarter: 2020Q4

REPORT INFORMATION
  Report Type: Spontaneous
  Country: US (occurrence: US)
  Receive Date: 20201030
  Receipt Date: 20201030
  Transmission Date: 20210114
  Serious: Yes (Hospitalization)
  Sender: FDA-Public Use
  Company Number: None

PATIENT
  Age: 58 Year
  Sex: Female
  Weight: 69.1 kg

DRUGS (2)
  1. VANCOMYCIN [Suspect]
     Active Substance: VANCOMYCIN
     Indication: BACTERAEMIA
     Route: 042
     Dates: start: 20201005, end: 20201014
  2. CASPOFUNGIN [Concomitant]
     Active Substance: CASPOFUNGIN
     Dates: start: 20201005, end: 20201023

REACTIONS (7)
  - Anaemia [None]
  - Hypophagia [None]
  - Acute kidney injury [None]
  - Drug level increased [None]
  - Staphylococcal infection [None]
  - Fungal infection [None]
  - Bacteraemia [None]

NARRATIVE: CASE EVENT DATE: 20201014
